FAERS Safety Report 21216434 (Version 1)
Quarter: 2022Q3

REPORT INFORMATION
  Report Type: Spontaneous
  Country: US (occurrence: None)
  Receive Date: 20220815
  Receipt Date: 20220815
  Transmission Date: 20221026
  Serious: Yes (Hospitalization, Disabling)
  Sender: FDA-Public Use
  Company Number: None

PATIENT
  Age: 24 Year
  Sex: Male
  Weight: 85.5 kg

DRUGS (1)
  1. LEVOFLOXACIN [Suspect]
     Active Substance: LEVOFLOXACIN
     Indication: Product used for unknown indication

REACTIONS (6)
  - Abdominal pain [None]
  - Fatigue [None]
  - Erectile dysfunction [None]
  - Asthenia [None]
  - Weight decreased [None]
  - Insomnia [None]

NARRATIVE: CASE EVENT DATE: 20220608
